FAERS Safety Report 5024316-3 (Version None)
Quarter: 2006Q2

REPORT INFORMATION
  Report Type: 
  Country: None (occurrence: None)
  Receive Date: 20060608
  Receipt Date: 20060608
  Transmission Date: 20061013
  Serious: Yes (Other)
  Sender: FDA-Public Use
  Company Number: None

PATIENT
  Age: 45 Year
  Sex: Male
  Weight: 105.2345 kg

DRUGS (2)
  1. CELEBREX [Suspect]
     Indication: PAIN IN EXTREMITY
     Dosage: 1 CAPSULE DAILY PO
     Route: 048
     Dates: start: 20060127, end: 20060217
  2. CELEBREX [Suspect]
     Indication: STRESS FRACTURE
     Dosage: 1 CAPSULE DAILY PO
     Route: 048
     Dates: start: 20060127, end: 20060217

REACTIONS (6)
  - CHEST DISCOMFORT [None]
  - GALLOP RHYTHM PRESENT [None]
  - HEART RATE INCREASED [None]
  - HEART RATE IRREGULAR [None]
  - HYPOAESTHESIA [None]
  - TACHYCARDIA [None]
